FAERS Safety Report 24379274 (Version 1)
Quarter: 2024Q3

REPORT INFORMATION
  Report Type: Spontaneous
  Country: GB (occurrence: GB)
  Receive Date: 20240930
  Receipt Date: 20240930
  Transmission Date: 20241016
  Serious: Yes (Other)
  Sender: NOVARTIS
  Company Number: None

PATIENT
  Age: 55 Year
  Sex: Female
  Weight: 44 kg

DRUGS (6)
  1. ZOLEDRONIC ACID [Suspect]
     Active Substance: ZOLEDRONIC ACID
     Indication: Adjuvant therapy
     Dosage: 4 MG
     Route: 065
  2. ZOLEDRONIC ACID [Suspect]
     Active Substance: ZOLEDRONIC ACID
     Indication: Breast cancer female
  3. OLAPARIB [Suspect]
     Active Substance: OLAPARIB
     Indication: Adjuvant therapy
     Dosage: 400 MG, QD (200 MG, BID)
     Route: 065
     Dates: start: 20240530
  4. OLAPARIB [Suspect]
     Active Substance: OLAPARIB
     Indication: Breast cancer female
  5. LANSOPRAZOLE [Concomitant]
     Active Substance: LANSOPRAZOLE
     Indication: Gastrooesophageal reflux disease
     Dosage: UNK
     Route: 065
  6. LEVOTHYROXINE [Concomitant]
     Active Substance: LEVOTHYROXINE\LEVOTHYROXINE SODIUM
     Indication: Hypothyroidism
     Dosage: UNK
     Route: 065

REACTIONS (1)
  - Iridocyclitis [Recovering/Resolving]
